FAERS Safety Report 9180154 (Version 1)
Quarter: 2013Q1

REPORT INFORMATION
  Report Type: Spontaneous
  Country: DE (occurrence: DE)
  Receive Date: 20130321
  Receipt Date: 20130321
  Transmission Date: 20140127
  Serious: Yes (Hospitalization)
  Sender: FDA-Public Use
  Company Number: GXKR2013DE001188

PATIENT
  Age: 75 Year
  Sex: Male
  Weight: 77 kg

DRUGS (1)
  1. ITRACONAZOLE [Suspect]
     Indication: BRONCHOPULMONARY ASPERGILLOSIS
     Dosage: 200 MG/DAY
     Route: 048
     Dates: start: 20110825, end: 20110925

REACTIONS (1)
  - Mania [Recovering/Resolving]
